FAERS Safety Report 5793208-4 (Version None)
Quarter: 2008Q2

REPORT INFORMATION
  Report Type: 
  Country: None (occurrence: None)
  Receive Date: 20080626
  Receipt Date: 20080626
  Transmission Date: 20081010
  Serious: No
  Sender: FDA-Public Use
  Company Number: None

PATIENT
  Age: 53 Year
  Sex: Female
  Weight: 86.1834 kg

DRUGS (2)
  1. LYRICA [Suspect]
     Indication: FIBROMYALGIA
     Dosage: 150MG 2 A DAY
     Dates: start: 20061201, end: 20080411
  2. LYRICA [Suspect]
     Indication: FIBROMYALGIA
     Dosage: 150MG 2 A DAY
     Dates: start: 20080401, end: 20080412

REACTIONS (1)
  - BLINDNESS [None]
